FAERS Safety Report 17552698 (Version 3)
Quarter: 2021Q2

REPORT INFORMATION
  Report Type: Report from Study
  Country: None (occurrence: CO)
  Receive Date: 20200318
  Receipt Date: 20210503
  Transmission Date: 20210716
  Serious: Yes (Hospitalization, Other)
  Sender: FDA-Public Use
  Company Number: CO-ABBVIE-20K-036-3284595-00

PATIENT
  Age: 64 Year
  Sex: Female
  Weight: 49 kg

DRUGS (2)
  1. ZEMPLAR [Suspect]
     Active Substance: PARICALCITOL
     Indication: HYPERPARATHYROIDISM SECONDARY
     Dosage: POST?DYALISIS
     Route: 042
     Dates: start: 20150925, end: 20200203
  2. ZEMPLAR [Suspect]
     Active Substance: PARICALCITOL
     Indication: CHRONIC KIDNEY DISEASE
     Dosage: POST?DYALISIS
     Route: 042

REACTIONS (19)
  - Pain in extremity [Recovering/Resolving]
  - Blood parathyroid hormone increased [Recovering/Resolving]
  - Speech disorder [Unknown]
  - Hip fracture [Recovering/Resolving]
  - Haemodialysis [Unknown]
  - Gait disturbance [Recovering/Resolving]
  - Osteoporotic fracture [Unknown]
  - Visual impairment [Recovering/Resolving]
  - Osteoporosis [Recovering/Resolving]
  - Localised infection [Recovering/Resolving]
  - Dialysis [Unknown]
  - Pain in extremity [Recovering/Resolving]
  - Procedural pain [Unknown]
  - Hypertension [Unknown]
  - Lower limb fracture [Recovering/Resolving]
  - Seizure [Recovering/Resolving]
  - Cerebral thrombosis [Recovering/Resolving]
  - Memory impairment [Recovering/Resolving]
  - Accident [Unknown]

NARRATIVE: CASE EVENT DATE: 2016
